FAERS Safety Report 23865438 (Version 1)
Quarter: 2024Q2

REPORT INFORMATION
  Report Type: Spontaneous
  Country: US (occurrence: US)
  Receive Date: 20240517
  Receipt Date: 20240517
  Transmission Date: 20240715
  Serious: No
  Sender: FDA-Public Use
  Company Number: US-TARSUS PHARMACEUTICALS-TSP-US-2024-000106

PATIENT
  Sex: Female

DRUGS (1)
  1. XDEMVY [Suspect]
     Active Substance: LOTILANER
     Indication: Product used for unknown indication
     Dosage: BID (IN BOTH EYES)
     Route: 047
     Dates: start: 2024, end: 2024

REACTIONS (4)
  - Eye discharge [Unknown]
  - Drug hypersensitivity [Not Recovered/Not Resolved]
  - Abnormal sensation in eye [Recovered/Resolved]
  - Eyelid margin crusting [Recovering/Resolving]

NARRATIVE: CASE EVENT DATE: 20240101
